FAERS Safety Report 17555224 (Version 1)
Quarter: 2020Q1

REPORT INFORMATION
  Report Type: Spontaneous
  Country: US (occurrence: US)
  Receive Date: 20200318
  Receipt Date: 20200318
  Transmission Date: 20200409
  Serious: No
  Sender: FDA-Public Use
  Company Number: US-RECORDATI RARE DISEASES-2081732

PATIENT
  Age: 46 Year
  Sex: Female

DRUGS (2)
  1. SIGNIFOR [Suspect]
     Active Substance: PASIREOTIDE DIASPARTATE
     Indication: PITUITARY-DEPENDENT CUSHING^S SYNDROME
  2. SIGNIFOR LAR [Suspect]
     Active Substance: PASIREOTIDE PAMOATE
     Route: 030

REACTIONS (3)
  - Dizziness [Unknown]
  - Vision blurred [Unknown]
  - Feeling abnormal [Unknown]
